FAERS Safety Report 14484220 (Version 2)
Quarter: 2018Q1

REPORT INFORMATION
  Report Type: Spontaneous
  Country: BR (occurrence: BR)
  Receive Date: 20180205
  Receipt Date: 20180219
  Transmission Date: 20180509
  Serious: Yes (Other)
  Sender: FDA-Public Use
  Company Number: BR-ROCHE-2061705

PATIENT
  Sex: Female

DRUGS (1)
  1. ACTEMRA [Suspect]
     Active Substance: TOCILIZUMAB
     Indication: STILL^S DISEASE
     Route: 042

REACTIONS (6)
  - Intentional product use issue [Unknown]
  - Oedema mouth [Recovering/Resolving]
  - Laryngeal oedema [Recovering/Resolving]
  - Skin oedema [Recovering/Resolving]
  - Off label use [Unknown]
  - Anaphylactic reaction [Recovering/Resolving]
